FAERS Safety Report 8367815-9 (Version None)
Quarter: 2012Q2

REPORT INFORMATION
  Report Type: 
  Country: None (occurrence: None)
  Receive Date: 20120517
  Receipt Date: 20120515
  Transmission Date: 20120825
  Serious: No
  Sender: FDA-Public Use
  Company Number: US-PFIZER INC-2012118956

PATIENT
  Sex: Male

DRUGS (1)
  1. SUTENT [Suspect]
     Indication: CONNECTIVE TISSUE NEOPLASM
     Dosage: 12.5 MG, UNK
     Dates: start: 20110214, end: 20120402

REACTIONS (2)
  - CONNECTIVE TISSUE NEOPLASM [None]
  - DISEASE PROGRESSION [None]
